FAERS Safety Report 8997046 (Version 1)
Quarter: 2012Q4

REPORT INFORMATION
  Report Type: Spontaneous
  Country: GB (occurrence: None)
  Receive Date: 20121221
  Receipt Date: 20121221
  Transmission Date: 20130627
  Serious: Yes (Other)
  Sender: FDA-Public Use
  Company Number: 2012GMK004513

PATIENT
  Age: 22 Year
  Sex: Female
  Weight: 87.7 kg

DRUGS (7)
  1. TOPIRAMATE (TOPIRAMATE) [Suspect]
     Indication: DRUG USE FOR UNKNOWN INDICATION
     Dates: start: 20120810
  2. DOCUSATE SODIUM [Concomitant]
  3. FOLIC ACID (FOLIC ACID) [Concomitant]
  4. LUBRICANTS NOS [Concomitant]
  5. NAPROXEN (NAPROXEN) [Concomitant]
  6. SERTRALINE (SERTRALINE) [Concomitant]
  7. TEGRETOL (CARBAMAZEPINE) [Concomitant]

REACTIONS (2)
  - Pruritus generalised [None]
  - Product substitution issue [None]
